FAERS Safety Report 7081524-8 (Version None)
Quarter: 2010Q4

REPORT INFORMATION
  Report Type: 
  Country: None (occurrence: None)
  Receive Date: 20101103
  Receipt Date: 20101029
  Transmission Date: 20110411
  Serious: Yes (Other)
  Sender: FDA-Public Use
  Company Number: US-MERCK-1009USA00267

PATIENT

DRUGS (5)
  1. DECADRON [Suspect]
     Route: 048
  2. MELPHALAN [Concomitant]
     Route: 065
  3. THALIDOMIDE [Concomitant]
     Route: 065
  4. BORTEZOMIB [Concomitant]
     Route: 065
  5. ZOMETA [Concomitant]
     Route: 065

REACTIONS (1)
  - MULTIPLE MYELOMA [None]
